FAERS Safety Report 10198847 (Version 2)
Quarter: 2014Q3

REPORT INFORMATION
  Report Type: Spontaneous
  Country: JP (occurrence: JP)
  Receive Date: 20140527
  Receipt Date: 20140820
  Transmission Date: 20150326
  Serious: Yes (Death, Other)
  Sender: FDA-Public Use
  Company Number: JP-SA-2014SA063802

PATIENT
  Age: 67 Year
  Sex: Male
  Weight: 47 kg

DRUGS (10)
  1. MAGMITT [Concomitant]
     Active Substance: MAGNESIUM OXIDE
     Route: 048
  2. TAXOTERE [Suspect]
     Active Substance: DOCETAXEL
     Indication: LUNG NEOPLASM MALIGNANT
     Route: 042
     Dates: start: 20140108, end: 20140108
  3. RAMOSETRON HYDROCHLORIDE [Concomitant]
     Active Substance: RAMOSETRON HYDROCHLORIDE
     Route: 042
  4. MUCOSAL [Concomitant]
     Route: 048
  5. DEXART [Concomitant]
     Active Substance: DEXAMETHASONE SODIUM PHOSPHATE
     Route: 065
  6. CAMPHOR/MENTHOL/METHYL SALICYLATE [Concomitant]
     Route: 062
  7. DECADRON [Concomitant]
     Active Substance: DEXAMETHASONE
     Route: 048
  8. TAXOTERE [Suspect]
     Active Substance: DOCETAXEL
     Indication: LUNG NEOPLASM MALIGNANT
     Route: 042
     Dates: start: 20131126, end: 20131126
  9. TAXOTERE [Suspect]
     Active Substance: DOCETAXEL
     Indication: LUNG NEOPLASM MALIGNANT
     Route: 042
     Dates: start: 20131218, end: 20131218
  10. NU LOTAN [Concomitant]
     Active Substance: LOSARTAN
     Route: 048

REACTIONS (9)
  - Pneumonia aspiration [Fatal]
  - VIIth nerve paralysis [Not Recovered/Not Resolved]
  - Trigeminal palsy [Not Recovered/Not Resolved]
  - Corneal infection [Unknown]
  - Eye disorder [Unknown]
  - Lagophthalmos [Unknown]
  - Ocular hyperaemia [Unknown]
  - Abnormal sensation in eye [Unknown]
  - Ulcerative keratitis [Unknown]

NARRATIVE: CASE EVENT DATE: 20140213
